FAERS Safety Report 8781005 (Version 1)
Quarter: 2012Q4

REPORT INFORMATION
  Report Type: 
  Country: US (occurrence: US)
  Receive Date: 20120913
  Receipt Date: 20120913
  Transmission Date: 20130627
  Serious: No
  Sender: FDA-Public Use
  Company Number: US-VERTEX PHARMACEUTICAL INC.-AE-2012-008133

PATIENT
  Age: 71 None
  Sex: Male
  Weight: 90.91 kg

DRUGS (9)
  1. INCIVEK [Suspect]
     Indication: HEPATITIS C
     Route: 048
     Dates: start: 20120518
  2. RIBASPHERE [Concomitant]
     Indication: HEPATITIS C
     Route: 048
     Dates: start: 20120518
  3. PEGINTRON [Concomitant]
     Indication: HEPATITIS C
  4. TOPROL [Concomitant]
     Indication: HYPERTENSION
  5. FOLIC ACID [Concomitant]
     Indication: MEDICAL DIET
  6. NEXIUM [Concomitant]
     Indication: GASTROOESOPHAGEAL REFLUX DISEASE
  7. PRILOSEC [Concomitant]
     Indication: GASTROOESOPHAGEAL REFLUX DISEASE
  8. SPIRONOLACTONE [Concomitant]
  9. MAGNESIUM [Concomitant]

REACTIONS (6)
  - Bloody discharge [Not Recovered/Not Resolved]
  - Musculoskeletal pain [Recovered/Resolved]
  - Neck pain [Recovered/Resolved]
  - Faeces discoloured [Not Recovered/Not Resolved]
  - Blood sodium decreased [Unknown]
  - Pruritus [Not Recovered/Not Resolved]
